FAERS Safety Report 12457113 (Version 1)
Quarter: 2016Q2

REPORT INFORMATION
  Report Type: Spontaneous
  Country: RO (occurrence: RO)
  Receive Date: 20160610
  Receipt Date: 20160610
  Transmission Date: 20160815
  Serious: Yes (Life-Threatening, Hospitalization)
  Sender: FDA-Public Use
  Company Number: RO-ABBVIE-16K-135-1645594-00

PATIENT
  Age: 72 Year
  Sex: Male
  Weight: 97 kg

DRUGS (11)
  1. SULPHASALAZINE [Concomitant]
     Active Substance: SULFASALAZINE
     Indication: RHEUMATOID ARTHRITIS
     Route: 048
     Dates: start: 20130724, end: 20160112
  2. NOLITERAX [Concomitant]
     Indication: ESSENTIAL HYPERTENSION
     Dosage: 10/2.5 MG
     Route: 048
     Dates: start: 20140717
  3. OLICARD [Concomitant]
     Indication: ANGINA PECTORIS
     Route: 048
     Dates: start: 20140717
  4. ASPIRIN CARDIO [Concomitant]
     Active Substance: ASPIRIN
     Indication: ANTIPLATELET THERAPY
     Route: 048
     Dates: start: 2014
  5. MEDROL [Suspect]
     Active Substance: METHYLPREDNISOLONE
     Indication: RHEUMATOID ARTHRITIS
     Route: 048
     Dates: start: 20130724, end: 20160110
  6. PLAVIX [Concomitant]
     Active Substance: CLOPIDOGREL BISULFATE
     Indication: ARTERIOSCLEROSIS
     Route: 048
     Dates: start: 2014
  7. SORTIS [Concomitant]
     Active Substance: ATORVASTATIN
     Indication: DYSLIPIDAEMIA
     Route: 048
     Dates: start: 2014
  8. METOPROLOL. [Concomitant]
     Active Substance: METOPROLOL
     Indication: ESSENTIAL HYPERTENSION
     Route: 048
     Dates: start: 1998
  9. NORVASC [Concomitant]
     Active Substance: AMLODIPINE BESYLATE
     Indication: ESSENTIAL HYPERTENSION
     Route: 048
     Dates: start: 20140717
  10. METOPROLOL. [Concomitant]
     Active Substance: METOPROLOL
     Indication: ISCHAEMIC CARDIOMYOPATHY
  11. HUMIRA [Suspect]
     Active Substance: ADALIMUMAB
     Indication: RHEUMATOID ARTHRITIS
     Route: 058
     Dates: start: 20110204, end: 20160110

REACTIONS (36)
  - Dyspnoea [Unknown]
  - Mitral valve incompetence [Unknown]
  - Enterocolitis haemorrhagic [Unknown]
  - Hypoproteinaemia [Unknown]
  - Hypertension [Unknown]
  - Hyponatraemia [Unknown]
  - Pulmonary embolism [Unknown]
  - Angina pectoris [Unknown]
  - Brain oedema [Unknown]
  - Pain in extremity [Unknown]
  - Diverticulum intestinal [Unknown]
  - Rhonchi [Unknown]
  - Aortic valve sclerosis [Unknown]
  - Cardiac valve disease [Unknown]
  - Hypokalaemia [Unknown]
  - Erythema [Unknown]
  - Fatigue [Unknown]
  - Chest pain [Unknown]
  - Aortic valve calcification [Unknown]
  - Confusional state [Unknown]
  - Hyperhidrosis [Unknown]
  - Anaemia [Unknown]
  - Coronary artery disease [Unknown]
  - Cardiac failure chronic [Unknown]
  - Varicose vein [Unknown]
  - Leukocytosis [Unknown]
  - Oedema peripheral [Unknown]
  - Pneumonia pseudomonal [Recovered/Resolved]
  - Aortic valve incompetence [Unknown]
  - Adrenal mass [Unknown]
  - Inflammation [Unknown]
  - Ventricular hypokinesia [Unknown]
  - Myocardial bridging [Unknown]
  - Blood urea increased [Unknown]
  - Aortic arteriosclerosis [Unknown]
  - Myocardial ischaemia [Unknown]

NARRATIVE: CASE EVENT DATE: 20160112
